FAERS Safety Report 7656821-5 (Version None)
Quarter: 2011Q3

REPORT INFORMATION
  Report Type: 
  Country: None (occurrence: None)
  Receive Date: 20110804
  Receipt Date: 20090501
  Transmission Date: 20111222
  Serious: Yes (Death, Disabling)
  Sender: FDA-Public Use
  Company Number: US-BAYER-200912047NA

PATIENT
  Sex: Male
  Weight: 81.273 kg

DRUGS (36)
  1. LOTREL [Concomitant]
  2. PRAVACHOL [Concomitant]
  3. LANTUS [Concomitant]
  4. ASCORBIC ACID W/FOLIC ACID/IRON/VITAMIN B12 [Concomitant]
  5. NEURONTIN [Concomitant]
  6. GASTROMARK [Concomitant]
     Indication: NUCLEAR MAGNETIC RESONANCE IMAGING ABDOMINAL
     Dates: start: 20060323, end: 20060323
  7. MAGNEVIST [Suspect]
     Indication: NUCLEAR MAGNETIC RESONANCE IMAGING
     Dosage: 20 ML, ONCE
     Dates: start: 19990818, end: 19990818
  8. MAGNEVIST [Suspect]
     Indication: NUCLEAR MAGNETIC RESONANCE IMAGING BRAIN
  9. MAGNEVIST [Suspect]
  10. OMNISCAN [Suspect]
     Indication: NUCLEAR MAGNETIC RESONANCE IMAGING
     Dosage: UNK
     Dates: start: 20060516, end: 20060516
  11. REGLAN [Concomitant]
  12. COUMADIN [Concomitant]
  13. OMNISCAN [Suspect]
     Indication: NUCLEAR MAGNETIC RESONANCE IMAGING BRAIN
     Dosage: UNK
     Dates: start: 20051206, end: 20051206
  14. OMNISCAN [Suspect]
  15. MULTIHANCE [Suspect]
     Indication: NUCLEAR MAGNETIC RESONANCE IMAGING
  16. LANOXIN [Concomitant]
  17. PROTONIX [Concomitant]
  18. AVINZA [Concomitant]
  19. MAGNEVIST [Suspect]
  20. PROHANCE [Suspect]
     Indication: NUCLEAR MAGNETIC RESONANCE IMAGING
  21. LEVOTHROID [Concomitant]
  22. RENA-VITE [VIT C,VIT H,B5,B12,B9,B3,B6,B2,B1 HCL] [Concomitant]
  23. QUININE SULFATE [Concomitant]
  24. OPTIMARK [Suspect]
     Indication: NUCLEAR MAGNETIC RESONANCE IMAGING
     Dosage: 20 ML, ONCE
     Dates: start: 20050901, end: 20050901
  25. OPTIMARK [Suspect]
     Dosage: 30 ML, ONCE
     Route: 042
     Dates: start: 20060323, end: 20060323
  26. NOVOLOG [Concomitant]
  27. EPOGEN [Concomitant]
     Dosage: WITH EACH HD
  28. NEPHROCAPS [Concomitant]
  29. MORPHINE [Concomitant]
  30. NIFEREX [Concomitant]
  31. ACIPHEX [Concomitant]
  32. IMODIUM [Concomitant]
  33. IMURAN [Concomitant]
     Dates: start: 19910101
  34. PHOSLO [Concomitant]
     Route: 048
  35. CYCLOSPORINE [Concomitant]
     Dosage: 100 MG ONETIME DOSE
     Dates: start: 19910101, end: 19910101
  36. ACYCLOVIR [Concomitant]
     Dates: start: 19910101

REACTIONS (21)
  - EMOTIONAL DISTRESS [None]
  - RASH GENERALISED [None]
  - SKIN HYPERTROPHY [None]
  - POST INFLAMMATORY PIGMENTATION CHANGE [None]
  - RASH MACULAR [None]
  - STASIS DERMATITIS [None]
  - PAIN [None]
  - DRY SKIN [None]
  - SKIN INDURATION [None]
  - OEDEMA [None]
  - JOINT CONTRACTURE [None]
  - ANXIETY [None]
  - ANHEDONIA [None]
  - NEUROPATHIC ARTHROPATHY [None]
  - SKIN TIGHTNESS [None]
  - SKIN ULCER [None]
  - GENERAL PHYSICAL HEALTH DETERIORATION [None]
  - SKIN EXFOLIATION [None]
  - NEPHROGENIC SYSTEMIC FIBROSIS [None]
  - JOINT RANGE OF MOTION DECREASED [None]
  - XEROSIS [None]
